FAERS Safety Report 9349971 (Version 2)
Quarter: 2013Q4

REPORT INFORMATION
  Report Type: Spontaneous
  Country: DK (occurrence: DK)
  Receive Date: 20130614
  Receipt Date: 20131230
  Transmission Date: 20140711
  Serious: Yes (Other)
  Sender: FDA-Public Use
  Company Number: PHHY2013DK059643

PATIENT
  Age: 64 Year
  Sex: Female

DRUGS (1)
  1. ZOMETA [Suspect]
     Indication: METASTASES TO BONE
     Dosage: 4 MG, PER 100 ML
     Route: 042
     Dates: start: 201201, end: 20120624

REACTIONS (6)
  - Osteonecrosis of jaw [Recovered/Resolved with Sequelae]
  - Bone lesion [Unknown]
  - Pain [Unknown]
  - Exposed bone in jaw [Unknown]
  - Fistula [Unknown]
  - Infection [Unknown]
